FAERS Safety Report 9092147 (Version 1)
Quarter: 2013Q1

REPORT INFORMATION
  Report Type: Spontaneous
  Country: BR (occurrence: BR)
  Receive Date: 20130131
  Receipt Date: 20130131
  Transmission Date: 20140127
  Serious: Yes (Other)
  Sender: FDA-Public Use
  Company Number: PHHY2013BR005463

PATIENT
  Sex: Female
  Weight: 43 kg

DRUGS (3)
  1. RITALIN LA [Suspect]
  2. LEXOTAN [Concomitant]
  3. RIVOTRIL [Concomitant]

REACTIONS (2)
  - Depression [Recovered/Resolved]
  - Crying [Recovered/Resolved]
